FAERS Safety Report 8830995 (Version 2)
Quarter: 2012Q4

REPORT INFORMATION
  Report Type: 
  Country: NO (occurrence: NO)
  Receive Date: 20121009
  Receipt Date: 20121019
  Transmission Date: 20130627
  Serious: Yes (Life-Threatening, Hospitalization)
  Sender: FDA-Public Use
  Company Number: PHHY2012NO088611

PATIENT
  Age: 61 Year
  Sex: Male

DRUGS (10)
  1. DICLOFENAC POTASSIUM [Suspect]
     Indication: BACK PAIN
     Dosage: 12.5 mg, UNK
     Route: 048
  2. DICLOFENAC POTASSIUM [Suspect]
     Route: 048
     Dates: start: 20120926, end: 20120926
  3. VOLTAREN [Suspect]
     Indication: BACK PAIN
     Dosage: 50 mg, UNK
     Route: 048
     Dates: start: 20120918, end: 20120918
  4. LOSARTAN [Concomitant]
     Dosage: 12.5 mg, UNK
     Route: 048
  5. PARACETAMOL [Concomitant]
     Dosage: 1 g, UNK
  6. ADRENALIN [Concomitant]
  7. CARVEDILOL [Concomitant]
     Dosage: 40 mg, BID
     Route: 048
  8. COZAAR [Concomitant]
     Route: 048
  9. SIMVASTATIN [Concomitant]
     Route: 048
  10. ALBYL-E [Concomitant]
     Route: 048

REACTIONS (11)
  - Cardiac arrest [Recovering/Resolving]
  - Anaphylactic reaction [Recovered/Resolved]
  - Pulse absent [Recovering/Resolving]
  - Shock [Recovering/Resolving]
  - Eye pruritus [Recovering/Resolving]
  - Pruritus [Recovering/Resolving]
  - Malaise [Unknown]
  - Erythema [Recovered/Resolved]
  - Dizziness [Unknown]
  - Hypotension [Recovering/Resolving]
  - Loss of consciousness [Recovering/Resolving]
